FAERS Safety Report 5731174-8 (Version None)
Quarter: 2008Q2

REPORT INFORMATION
  Report Type: 
  Country: None (occurrence: None)
  Receive Date: 20080507
  Receipt Date: 20080501
  Transmission Date: 20081010
  Serious: Yes (Death, Life-Threatening)
  Sender: FDA-Public Use
  Company Number: CA-BOEHRINGER INGELHEIM GMBH, GERMANY-2008-BP-06822RO

PATIENT
  Age: 21 Year
  Sex: Female

DRUGS (5)
  1. AZATHIOPRINE [Suspect]
     Indication: CROHN'S DISEASE
  2. HIGH DOSE DAUNORUBICIN [Concomitant]
     Indication: LEUKAEMIA
  3. CYTARABINE [Concomitant]
     Indication: LEUKAEMIA
  4. CYCLOPHOSPHAMIDE [Concomitant]
     Indication: LEUKAEMIA
  5. ETOPOSIDE [Concomitant]
     Indication: LEUKAEMIA

REACTIONS (2)
  - ACUTE MYELOID LEUKAEMIA [None]
  - PANCYTOPENIA [None]
